FAERS Safety Report 4520228-X (Version None)
Quarter: 2004Q4

REPORT INFORMATION
  Report Type: 
  Country: None (occurrence: None)
  Receive Date: 20041022
  Receipt Date: 20040919
  Transmission Date: 20050328
  Serious: No
  Sender: FDA-Public Use
  Company Number: 2004236761US

PATIENT
  Sex: 0

DRUGS (4)
  1. INSPRA [Suspect]
  2. BETA BLOCKING AGENTS [Concomitant]
  3. DIURETICS [Concomitant]
  4. CHOLESTEROL-AND TRIGLYCERIDE REDUCERS [Concomitant]

REACTIONS (1)
  - LIVER FUNCTION TEST ABNORMAL [None]
